FAERS Safety Report 25924822 (Version 1)
Quarter: 2025Q4

REPORT INFORMATION
  Report Type: Spontaneous
  Country: EU (occurrence: EU)
  Receive Date: 20251015
  Receipt Date: 20251015
  Transmission Date: 20260118
  Serious: Yes (Congenital Anomaly)
  Sender: NOVARTIS
  Company Number: EU-MYLANLABS-2025M1077947

PATIENT
  Weight: 3.1 kg

DRUGS (10)
  1. ALPELISIB [Suspect]
     Active Substance: ALPELISIB
     Indication: PIK3CA related overgrowth spectrum
     Dosage: 250 MG, QD (WAS STOPPED BEFORE PREGNANCY AND THEN LATER RESUMED AT SAME DOSAGE.)
     Route: 064
  2. ALPELISIB [Suspect]
     Active Substance: ALPELISIB
     Dosage: 125 MG, QD
     Route: 064
  3. ALPELISIB [Suspect]
     Active Substance: ALPELISIB
     Dosage: 175 MG, QD (AFTER SKIN AND VAGINAL DRYNESS DOSE WAS REDUCED; AFTER REBOUND EFFECT DOSE WAS INCREASED
     Route: 064
  4. FOLIC ACID [Suspect]
     Active Substance: FOLIC ACID
     Indication: Vitamin supplementation
     Dosage: UNK
     Route: 064
  5. ENOXAPARIN [Suspect]
     Active Substance: ENOXAPARIN
     Indication: Thrombosis prophylaxis
     Dosage: UNK
     Route: 064
  6. PREGABALIN [Suspect]
     Active Substance: PREGABALIN
     Indication: Neuralgia
     Dosage: UNK
     Route: 064
  7. PREGABALIN [Suspect]
     Active Substance: PREGABALIN
     Indication: Sciatica
  8. HUMAN RHO(D) IMMUNE GLOBULIN [Suspect]
     Active Substance: HUMAN RHO(D) IMMUNE GLOBULIN
     Indication: Rhesus incompatibility
     Dosage: UNK
     Route: 064
  9. SIROLIMUS [Concomitant]
     Active Substance: SIROLIMUS
     Indication: Neuralgia
     Dosage: UNK
     Route: 065
  10. SIROLIMUS [Concomitant]
     Active Substance: SIROLIMUS
     Indication: Sciatica

REACTIONS (2)
  - Polydactyly [Unknown]
  - Foetal exposure during pregnancy [Unknown]
